FAERS Safety Report 15369572 (Version 1)
Quarter: 2018Q3

REPORT INFORMATION
  Report Type: Spontaneous
  Country: US (occurrence: US)
  Receive Date: 20180911
  Receipt Date: 20180911
  Transmission Date: 20181010
  Serious: No
  Sender: FDA-Public Use
  Company Number: US-PFIZER INC-2017213016

PATIENT
  Age: 51 Year
  Sex: Female
  Weight: 124.7 kg

DRUGS (1)
  1. LYRICA [Suspect]
     Active Substance: PREGABALIN
     Indication: NEUROPATHY PERIPHERAL
     Dosage: 300 MG, DAILY (75MG CAPSULES?1 CAPSULE IN THE MORNING, 3 CAPSULES AT NIGHT )
     Route: 048
     Dates: start: 2016

REACTIONS (2)
  - Drug dose omission [Not Recovered/Not Resolved]
  - Insomnia [Not Recovered/Not Resolved]

NARRATIVE: CASE EVENT DATE: 20180822
